FAERS Safety Report 7427443-6 (Version None)
Quarter: 2011Q2

REPORT INFORMATION
  Report Type: 
  Country: None (occurrence: None)
  Receive Date: 20110420
  Receipt Date: 20110406
  Transmission Date: 20111010
  Serious: Yes (Death, Hospitalization)
  Sender: FDA-Public Use
  Company Number: US-CELGENEUS-163-21880-11040663

PATIENT
  Sex: Male
  Weight: 67.646 kg

DRUGS (12)
  1. REVLIMID [Suspect]
     Dosage: 10 MILLIGRAM
     Route: 048
     Dates: start: 20110316, end: 20110101
  2. CYANOCOBALAMIN [Concomitant]
     Dosage: 1000 MICROGRAM
     Route: 065
  3. ACETAMINOPHEN [Concomitant]
     Dosage: 650 MILLIGRAM
     Route: 048
  4. NEXIUM [Concomitant]
     Dosage: 40 MILLIGRAM
     Route: 048
  5. TAMSULOSIN [Concomitant]
     Dosage: .4 MILLIGRAM
     Route: 065
  6. VITAMIN B-12 [Concomitant]
     Dosage: 1000
     Route: 048
  7. MORPHINE SULFATE [Concomitant]
     Dosage: 15 MILLIGRAM
     Route: 048
  8. PAROXETINE HCL [Concomitant]
     Dosage: 30 MILLIGRAM
     Route: 048
  9. DEXAMETHASONE [Concomitant]
     Dosage: 2 MILLIGRAM
     Route: 048
  10. GABAPENTIN [Concomitant]
     Dosage: 100 MILLIGRAM
     Route: 048
  11. CALCIUM/VITAMIN D [Concomitant]
     Dosage: 600
     Route: 048
  12. HYDROMORPHONE [Concomitant]
     Dosage: 2 MILLIGRAM
     Route: 048

REACTIONS (1)
  - DEATH [None]
